FAERS Safety Report 5467790-0 (Version None)
Quarter: 2007Q3

REPORT INFORMATION
  Report Type: 
  Country: None (occurrence: None)
  Receive Date: 20070926
  Receipt Date: 20070918
  Transmission Date: 20080115
  Serious: Yes (Hospitalization, Congenital Anomaly)
  Sender: FDA-Public Use
  Company Number: PHBS2007TR15510

PATIENT
  Sex: Male
  Weight: 2.8 kg

DRUGS (1)
  1. CARBAMAZEPINE [Suspect]
     Route: 064

REACTIONS (9)
  - CARDIOMEGALY [None]
  - CYANOSIS [None]
  - DRUG EXPOSURE DURING PREGNANCY [None]
  - HEART RATE INCREASED [None]
  - MEDIASTINAL DISORDER [None]
  - PO2 DECREASED [None]
  - RESPIRATORY RATE INCREASED [None]
  - TRANSPOSITION OF THE GREAT VESSELS [None]
  - WEIGHT DECREASED [None]
